FAERS Safety Report 5027496-9 (Version None)
Quarter: 2006Q2

REPORT INFORMATION
  Report Type: 
  Country: None (occurrence: None)
  Receive Date: 20060501
  Receipt Date: 20060222
  Transmission Date: 20061013
  Serious: Yes (Other)
  Sender: FDA-Public Use
  Company Number: 200611786US

PATIENT
  Age: 45 Year
  Sex: Female

DRUGS (1)
  1. KETEK [Suspect]

REACTIONS (4)
  - ASTHENIA [None]
  - DIPLOPIA [None]
  - EXTRAOCULAR MUSCLE PARESIS [None]
  - MYASTHENIA GRAVIS [None]
